FAERS Safety Report 20405368 (Version 1)
Quarter: 2022Q1

REPORT INFORMATION
  Report Type: Spontaneous
  Country: US (occurrence: US)
  Receive Date: 20220131
  Receipt Date: 20220131
  Transmission Date: 20220423
  Serious: Yes (Other)
  Sender: FDA-Public Use
  Company Number: US-PFIZER INC-202200094408

PATIENT
  Sex: Male

DRUGS (1)
  1. LIPITOR [Suspect]
     Active Substance: ATORVASTATIN CALCIUM
     Dosage: UNK
     Dates: start: 201801

REACTIONS (7)
  - Parkinson^s disease [Unknown]
  - Myopathy [Unknown]
  - Blood creatine phosphokinase increased [Recovering/Resolving]
  - Muscular weakness [Unknown]
  - Loss of personal independence in daily activities [Unknown]
  - Hepatic enzyme increased [Unknown]
  - Drug hypersensitivity [Unknown]
